FAERS Safety Report 14036062 (Version 1)
Quarter: 2017Q4

REPORT INFORMATION
  Report Type: Spontaneous
  Country: US (occurrence: US)
  Receive Date: 20171003
  Receipt Date: 20171003
  Transmission Date: 20180321
  Serious: No
  Sender: FDA-Public Use
  Company Number: US-ROCHE-1936817

PATIENT
  Sex: Male

DRUGS (1)
  1. ZELBORAF [Suspect]
     Active Substance: VEMURAFENIB
     Indication: METASTASES TO SKIN
     Route: 048
     Dates: start: 20170131

REACTIONS (2)
  - Alopecia [Unknown]
  - Neuropathy peripheral [Not Recovered/Not Resolved]
